FAERS Safety Report 5186800-1 (Version None)
Quarter: 2006Q4

REPORT INFORMATION
  Report Type: 
  Country: None (occurrence: None)
  Receive Date: 20061220
  Receipt Date: 20061030
  Transmission Date: 20070319
  Serious: No
  Sender: FDA-Public Use
  Company Number: US-AMGEN-KDL198781

PATIENT
  Sex: Female

DRUGS (2)
  1. ENBREL [Suspect]
     Indication: RHEUMATOID ARTHRITIS
     Route: 058
     Dates: start: 20051101
  2. AZULFIDINE [Concomitant]
     Dates: start: 20030101

REACTIONS (3)
  - CONDITION AGGRAVATED [None]
  - CONTUSION [None]
  - OEDEMA PERIPHERAL [None]
